FAERS Safety Report 5526341-2 (Version None)
Quarter: 2007Q4

REPORT INFORMATION
  Report Type: 
  Country: None (occurrence: None)
  Receive Date: 20071127
  Receipt Date: 20071122
  Transmission Date: 20080405
  Serious: Yes (Death, Life-Threatening)
  Sender: FDA-Public Use
  Company Number: JP-NOVOPROD-269605

PATIENT

DRUGS (3)
  1. NOVOSEVEN [Suspect]
     Indication: HAEMORRHAGE
     Dosage: 28.8 MG, UNK
     Route: 042
     Dates: start: 20071117, end: 20071118
  2. NOVOSEVEN [Suspect]
     Dosage: 19.2 MG, UNK
     Route: 042
     Dates: start: 20071119, end: 20071119
  3. PREDNISOLONE [Concomitant]
     Dosage: 60 MG, UNK
     Route: 042
     Dates: start: 20071117, end: 20071122

REACTIONS (1)
  - MULTI-ORGAN FAILURE [None]
